FAERS Safety Report 9414307 (Version 1)
Quarter: 2013Q3

REPORT INFORMATION
  Report Type: Spontaneous
  Country: US (occurrence: US)
  Receive Date: 20130723
  Receipt Date: 20130723
  Transmission Date: 20140515
  Serious: No
  Sender: FDA-Public Use
  Company Number: US-009507513-1307USA005196

PATIENT
  Age: 49 Year
  Sex: Female

DRUGS (3)
  1. PEGINTRON [Suspect]
     Indication: HEPATITIS C
     Dosage: 0.5 ML, ONCE A WEEK, REDIPEN
     Dates: start: 20130624
  2. RIBAPAK [Suspect]
  3. TELAPREVIR [Suspect]
     Dosage: INCIVEK

REACTIONS (2)
  - Rash [Recovered/Resolved]
  - Product quality issue [Unknown]
